FAERS Safety Report 11475181 (Version 1)
Quarter: 2015Q3

REPORT INFORMATION
  Report Type: Spontaneous
  Country: US (occurrence: None)
  Receive Date: 20150908
  Receipt Date: 20150908
  Transmission Date: 20151125
  Serious: No
  Sender: FDA-Public Use
  Company Number: None

PATIENT
  Age: 15 Year
  Sex: Female
  Weight: 81.19 kg

DRUGS (1)
  1. PROZAC [Suspect]
     Active Substance: FLUOXETINE HYDROCHLORIDE
     Dosage: 1 PILL
     Route: 048
     Dates: start: 20150709, end: 20150709

REACTIONS (1)
  - Dizziness [None]

NARRATIVE: CASE EVENT DATE: 20150709
